FAERS Safety Report 25160631 (Version 1)
Quarter: 2025Q2

REPORT INFORMATION
  Report Type: Report from Study
  Country: DE (occurrence: DE)
  Receive Date: 20250404
  Receipt Date: 20250404
  Transmission Date: 20250717
  Serious: Yes (Hospitalization)
  Sender: ROCHE
  Company Number: DE-ROCHE-10000243154

PATIENT
  Age: 55 Year
  Sex: Male

DRUGS (2)
  1. FARICIMAB [Suspect]
     Active Substance: FARICIMAB
     Indication: Neovascular age-related macular degeneration
     Route: 050
     Dates: start: 20240411
  2. AMLODIPINE BESYLATE\OLMESARTAN MEDOXOMIL [Concomitant]
     Active Substance: AMLODIPINE BESYLATE\OLMESARTAN MEDOXOMIL
     Indication: Hypertension
     Route: 048

REACTIONS (1)
  - Atrial fibrillation [Recovered/Resolved]

NARRATIVE: CASE EVENT DATE: 20241106
